FAERS Safety Report 10035447 (Version 1)
Quarter: 2014Q1

REPORT INFORMATION
  Report Type: Spontaneous
  Country: US (occurrence: None)
  Receive Date: 20140306
  Receipt Date: 20140306
  Transmission Date: 20141002
  Serious: Yes (Other)
  Sender: FDA-Public Use
  Company Number: 163-21880-13011400

PATIENT
  Age: 72 Year
  Sex: Female

DRUGS (10)
  1. REVLIMID (LENALIDOMIDE) (25 MILLIGRAM, CAPSULES) [Suspect]
     Indication: PLASMA CELL MYELOMA
     Dosage: 25 MG, 14 IN 14 D, PO  01/02/2013 - UNKNOWN THERAPY DATES
     Route: 048
     Dates: start: 20130102
  2. LOVASTATIN [Concomitant]
  3. OXYCONTIN HYDROCHLORIDE [Concomitant]
  4. HYDROCODONE / APAP (VICODIN) [Concomitant]
  5. ATENOLOL [Concomitant]
  6. DOC-Q-LACE (DOCUSATE SODIUM) [Concomitant]
  7. DEXAMETHASONE [Concomitant]
  8. AMLODIPINE [Concomitant]
  9. ALENDRONATE (ALENDRONATE SODIUM) [Concomitant]
  10. PREMARIN (ESTROGENS CONJUGATED) [Concomitant]

REACTIONS (1)
  - Diarrhoea [None]
